FAERS Safety Report 4414752-8 (Version None)
Quarter: 2004Q3

REPORT INFORMATION
  Report Type: 
  Country: None (occurrence: None)
  Receive Date: 20040804
  Receipt Date: 20030820
  Transmission Date: 20050211
  Serious: No
  Sender: FDA-Public Use
  Company Number: US-BRISTOL-MYERS SQUIBB COMPANY-12360442

PATIENT
  Age: 54 Year
  Sex: Female
  Weight: 93 kg

DRUGS (7)
  1. GLUCOVANCE [Suspect]
     Indication: DIABETES MELLITUS NON-INSULIN-DEPENDENT
     Route: 048
  2. LANTUS [Concomitant]
  3. LIPITOR [Concomitant]
  4. CHONDROITIN + GLUCOSAMINE [Concomitant]
     Dosage: THERAPY FROM:  ^ONE MONTH AGO^
  5. VITAMIN E [Concomitant]
  6. VITAMIN B COMPLEX CAP [Concomitant]
  7. AMARYL [Concomitant]
     Dosage: ^DISCONTINUED BEFORE STARTING LANTUS^

REACTIONS (1)
  - BLOOD GLUCOSE INCREASED [None]
